FAERS Safety Report 6002190-6 (Version None)
Quarter: 2008Q4

REPORT INFORMATION
  Report Type: 
  Country: None (occurrence: None)
  Receive Date: 20081212
  Receipt Date: 20081204
  Transmission Date: 20090506
  Serious: Yes (Death, Hospitalization, Other)
  Sender: FDA-Public Use
  Company Number: 2008SP023333

PATIENT
  Age: 66 Year
  Sex: Male
  Weight: 118.5 kg

DRUGS (13)
  1. TEMOZOLOMIDE [Suspect]
     Indication: GLIOBLASTOMA MULTIFORME
     Dosage: 180 MG; ; PO
     Route: 048
     Dates: start: 20070910, end: 20070930
  2. TEMOZOLOMIDE [Suspect]
     Indication: GLIOBLASTOMA MULTIFORME
     Dosage: 180 MG; ; PO
     Route: 048
     Dates: start: 20070523
  3. DECADRON [Suspect]
     Indication: PROPHYLAXIS
     Dosage: 4 MG; TID;
     Dates: start: 20070401
  4. KEPPRA [Suspect]
     Indication: CONVULSION PROPHYLAXIS
     Dosage: 750 MG; BID;
     Dates: start: 20070401
  5. ASPIRIN [Concomitant]
  6. CALCIUM [Concomitant]
  7. VITAMIN D [Concomitant]
  8. FERROUS SULFATE TAB [Concomitant]
  9. MULTI-VITAMIN [Concomitant]
  10. METOPROLOL [Concomitant]
  11. NEXIUM [Concomitant]
  12. NITROSTAT [Concomitant]
  13. VYTORIN [Concomitant]

REACTIONS (9)
  - AGITATION [None]
  - ASTHENIA [None]
  - ATRIAL FIBRILLATION [None]
  - CHEST PAIN [None]
  - CONFUSIONAL STATE [None]
  - DYSPNOEA [None]
  - HYPERGLYCAEMIA [None]
  - LYMPHOPENIA [None]
  - MUSCULAR WEAKNESS [None]
